FAERS Safety Report 24312261 (Version 1)
Quarter: 2024Q3

REPORT INFORMATION
  Report Type: Spontaneous
  Country: US (occurrence: None)
  Receive Date: 20240911
  Receipt Date: 20240911
  Transmission Date: 20241017
  Serious: Yes (Other)
  Sender: Public
  Company Number: None

PATIENT
  Sex: Female

DRUGS (11)
  1. LENALIDOMIDE [Suspect]
     Active Substance: LENALIDOMIDE
     Indication: Plasma cell myeloma
     Dosage: FREQUENCY: TAKE 1 CAPSULE BY MOUTH DAILY ON DAYS 1-21 OF EACH 28 DAY CYCLE.
     Route: 048
     Dates: start: 20240808
  2. ACETAMINOPHEN [Concomitant]
     Active Substance: ACETAMINOPHEN
  3. ALPHA LIPOIC [Concomitant]
  4. ASCORBIC ACD [Concomitant]
  5. CALTRATE 600 CHW [Concomitant]
  6. CALTRATE+D TAB [Concomitant]
  7. DEXAMETHASON [Concomitant]
  8. FEXOFENADINE HYDROCHLORIDE [Concomitant]
     Active Substance: FEXOFENADINE HYDROCHLORIDE
  9. FLUTICASONE [Concomitant]
  10. GINGER [Concomitant]
     Active Substance: GINGER
  11. IBUPROFEN [Concomitant]

REACTIONS (1)
  - Hip surgery [None]
